FAERS Safety Report 12191982 (Version 3)
Quarter: 2016Q2

REPORT INFORMATION
  Report Type: Spontaneous
  Country: JP (occurrence: JP)
  Receive Date: 20160318
  Receipt Date: 20160413
  Transmission Date: 20160815
  Serious: Yes (Hospitalization, Other)
  Sender: FDA-Public Use
  Company Number: JP-PFIZER INC-2016158966

PATIENT
  Age: 67 Year
  Sex: Male
  Weight: 70 kg

DRUGS (9)
  1. ZYVOX [Suspect]
     Active Substance: LINEZOLID
     Indication: STAPHYLOCOCCUS TEST POSITIVE
     Dosage: 1200 MG, 1X/DAY
     Route: 048
     Dates: start: 20160201, end: 20160215
  2. ZYVOX [Suspect]
     Active Substance: LINEZOLID
     Indication: STAPHYLOCOCCUS TEST POSITIVE
  3. BAKTAR [Suspect]
     Active Substance: SULFAMETHOXAZOLE\TRIMETHOPRIM
     Indication: STAPHYLOCOCCUS TEST POSITIVE
     Dosage: 2 DF, DAILY
     Route: 048
     Dates: start: 20160201, end: 20160229
  4. CLINDAMYCIN PHOSPHATE. [Suspect]
     Active Substance: CLINDAMYCIN PHOSPHATE
     Indication: ABSCESS
     Dosage: 1200 MG, DAILY
     Route: 041
     Dates: start: 20160120, end: 20160229
  5. ZYVOX [Suspect]
     Active Substance: LINEZOLID
     Indication: ABSCESS
     Dosage: 1200 MG, 1X/DAY
     Route: 048
     Dates: start: 20160120, end: 20160128
  6. MEROPENEM. [Suspect]
     Active Substance: MEROPENEM
     Dosage: 0.5 G, 1X/DAY
     Route: 041
     Dates: start: 20160116, end: 20160119
  7. ZYVOX [Suspect]
     Active Substance: LINEZOLID
     Indication: ABSCESS
     Dosage: 1200 MG, DAILY
     Route: 041
     Dates: start: 20160129, end: 20160131
  8. CLINDAMYCIN PHOSPHATE. [Suspect]
     Active Substance: CLINDAMYCIN PHOSPHATE
     Indication: STAPHYLOCOCCUS TEST POSITIVE
  9. BAKTAR [Suspect]
     Active Substance: SULFAMETHOXAZOLE\TRIMETHOPRIM
     Indication: ABSCESS
     Dosage: 2 DF, DAILY
     Route: 048
     Dates: start: 20160120, end: 20160129

REACTIONS (3)
  - Platelet count decreased [Recovering/Resolving]
  - Encephalitis influenzal [Recovered/Resolved]
  - Red blood cell count decreased [Recovering/Resolving]

NARRATIVE: CASE EVENT DATE: 20160125
